FAERS Safety Report 26187608 (Version 1)
Quarter: 2025Q4

REPORT INFORMATION
  Report Type: Spontaneous
  Country: US (occurrence: US)
  Receive Date: 20251222
  Receipt Date: 20251222
  Transmission Date: 20260118
  Serious: No
  Sender: DR REDDYS
  Company Number: US-DRL-USA-USA/2025/12/018970

PATIENT
  Age: 66 Year
  Sex: Male

DRUGS (3)
  1. COLCHICINE [Suspect]
     Active Substance: COLCHICINE
     Indication: Gout
  2. PREDNISONE [Suspect]
     Active Substance: PREDNISONE
     Indication: Gout
  3. PREDNISONE [Suspect]
     Active Substance: PREDNISONE
     Indication: Seronegative arthritis

REACTIONS (2)
  - Product dose omission issue [Recovering/Resolving]
  - Drug ineffective [Recovering/Resolving]
